FAERS Safety Report 15558114 (Version 1)
Quarter: 2018Q4

REPORT INFORMATION
  Report Type: Spontaneous
  Country: US (occurrence: US)
  Receive Date: 20181027
  Receipt Date: 20181027
  Transmission Date: 20190205
  Serious: No
  Sender: FDA-Public Use
  Company Number: US-IPSEN BIOPHARMACEUTICALS, INC.-2018-15771

PATIENT
  Sex: Female

DRUGS (6)
  1. LANREOTIDE [Concomitant]
     Active Substance: LANREOTIDE
     Indication: NEUROENDOCRINE TUMOUR
  2. ATENOLOL. [Concomitant]
     Active Substance: ATENOLOL
  3. LEVOTHYROXINE SODIUM. [Concomitant]
     Active Substance: LEVOTHYROXINE SODIUM
  4. LOTREL [Concomitant]
     Active Substance: AMLODIPINE BESYLATE\BENAZEPRIL HYDROCHLORIDE
  5. XGEVA [Concomitant]
     Active Substance: DENOSUMAB
  6. XERMELO [Suspect]
     Active Substance: TELOTRISTAT ETHYL
     Indication: CARCINOID SYNDROME
     Route: 048
     Dates: start: 20170324

REACTIONS (1)
  - Diarrhoea [Not Recovered/Not Resolved]
